FAERS Safety Report 4493600-4 (Version None)
Quarter: 2004Q4

REPORT INFORMATION
  Report Type: 
  Country: None (occurrence: None)
  Receive Date: 20041102
  Receipt Date: 20041019
  Transmission Date: 20050328
  Serious: Yes (Other)
  Sender: FDA-Public Use
  Company Number: 2004239772US

PATIENT
  Age: 56 Year
  Sex: Male

DRUGS (11)
  1. DOXORUBICIN HCL [Suspect]
     Indication: MULTIPLE MYELOMA
     Dosage: 8 CYCLES
  2. VINCRISTINE [Suspect]
     Indication: MULTIPLE MYELOMA
     Dosage: 8 CYCLES
  3. CYCLOPHOSPHAMIDE (CYCLOPHOPHAMIDE) POWDER [Suspect]
     Indication: MULTIPLE MYELOMA
     Dosage: CYCLIC
  4. ETOPOSIDE [Suspect]
     Indication: MULTIPLE MYELOMA
  5. MITOXANTRONE [Suspect]
     Indication: PRECURSOR B-LYMPHOBLASTIC LYMPHOMA
  6. MELPHALAN (MELPHALAN) [Suspect]
     Indication: MULTIPLE MYELOMA
     Dosage: CYCLIC
  7. CARMUSTINE [Suspect]
     Indication: MULTIPLE MYELOMA
     Dosage: CYCLIC
  8. GEMCITABINE (GEMCITABINE) [Suspect]
     Indication: LYMPHOMA
     Dosage: CYCLIC
  9. CAMPATH [Suspect]
  10. FLUDARABINE PHOSPHATE [Suspect]
     Indication: PRECURSOR B-LYMPHOBLASTIC LYMPHOMA
  11. PREDNISONE [Concomitant]

REACTIONS (6)
  - ACUTE LYMPHOCYTIC LEUKAEMIA [None]
  - ACUTE RESPIRATORY FAILURE [None]
  - ASPIRATION [None]
  - AUTOLOGOUS BONE MARROW TRANSPLANTATION THERAPY [None]
  - DRUG INEFFECTIVE [None]
  - LEUKOENCEPHALOPATHY [None]
